FAERS Safety Report 9451576 (Version 2)
Quarter: 2013Q3

REPORT INFORMATION
  Report Type: Report from Study
  Country: JP (occurrence: JP)
  Receive Date: 20130811
  Receipt Date: 20130923
  Transmission Date: 20140515
  Serious: Yes (Death, Disabling)
  Sender: FDA-Public Use
  Company Number: JP-CUBIST PHARMACEUTICAL, INC.-2012CBST000046

PATIENT
  Sex: 0

DRUGS (8)
  1. CUBICIN [Suspect]
     Indication: SEPSIS
     Dosage: 6 MG/KG, Q48H
     Route: 041
     Dates: start: 20121010, end: 20121012
  2. CUBICIN [Suspect]
     Indication: OFF LABEL USE
  3. FENTANYL [Concomitant]
     Indication: SEPSIS
     Dosage: 48 ML, QD
     Route: 041
     Dates: start: 20120925, end: 20121014
  4. MILRINONE [Concomitant]
     Indication: CARDIAC FAILURE
     Dosage: 30 ML, QD
     Route: 041
     Dates: start: 20120924, end: 20121024
  5. DOBUTAMINE [Concomitant]
     Indication: CARDIAC FAILURE
     Dosage: 300 MG, QD
     Route: 041
     Dates: start: 20120928, end: 20121024
  6. MIRACLID [Concomitant]
     Indication: CIRCULATORY COLLAPSE
     Dosage: 300 (THOUSAND-MILLION UNIT), QD
     Route: 041
     Dates: start: 20121009, end: 20121012
  7. PITRESSIN                          /01872201/ [Concomitant]
     Indication: POLYURIA
     Dosage: 60 (UNDER 1000 UNIT), QD
     Route: 051
     Dates: start: 20121010, end: 20121012
  8. INOVAN                             /00360702/ [Concomitant]
     Indication: BLOOD PRESSURE DECREASED
     Dosage: 300 MG, QD
     Route: 041
     Dates: start: 20121010, end: 20121012

REACTIONS (3)
  - Cardiac failure [Fatal]
  - Aortic valve incompetence [Fatal]
  - Drug ineffective for unapproved indication [Unknown]
